FAERS Safety Report 12061911 (Version 1)
Quarter: 2016Q1

REPORT INFORMATION
  Report Type: Spontaneous
  Country: CH (occurrence: CH)
  Receive Date: 20160210
  Receipt Date: 20160210
  Transmission Date: 20160526
  Serious: Yes (Life-Threatening, Hospitalization, Other)
  Sender: FDA-Public Use
  Company Number: CH-ASTRAZENECA-2016SE12523

PATIENT
  Sex: Male

DRUGS (1)
  1. FORXIGA [Suspect]
     Active Substance: DAPAGLIFLOZIN
     Route: 048

REACTIONS (6)
  - Urosepsis [Recovering/Resolving]
  - Pneumonia klebsiella [Unknown]
  - Acute kidney injury [Recovering/Resolving]
  - Diabetic nephropathy [Unknown]
  - Metabolic acidosis [Recovering/Resolving]
  - Septic shock [Unknown]
